FAERS Safety Report 8437151-0 (Version None)
Quarter: 2012Q2

REPORT INFORMATION
  Report Type: 
  Country: None (occurrence: None)
  Receive Date: 20120614
  Receipt Date: 20120418
  Transmission Date: 20120825
  Serious: No
  Sender: FDA-Public Use
  Company Number: US-AMGEN-USASP2012019200

PATIENT
  Age: 73 Year
  Sex: Female

DRUGS (6)
  1. VITAMIN TAB [Concomitant]
     Dosage: UNK
  2. PAXIL [Concomitant]
     Dosage: UNK
  3. ALLERGY MEDICATION [Concomitant]
     Dosage: UNK
  4. PROLIA [Suspect]
     Indication: PRODUCT USED FOR UNKNOWN INDICATION
     Dosage: UNK
     Route: 058
     Dates: start: 20111101
  5. HEARTBURN MD [Concomitant]
     Dosage: UNK
  6. CHOLESTEROL [Concomitant]
     Dosage: UNK

REACTIONS (5)
  - DEVICE FAILURE [None]
  - TOOTHACHE [None]
  - PAIN IN JAW [None]
  - DENTAL CARIES [None]
  - TEMPOROMANDIBULAR JOINT SYNDROME [None]
